FAERS Safety Report 9693529 (Version 2)
Quarter: 2014Q1

REPORT INFORMATION
  Report Type: Spontaneous
  Country: US (occurrence: US)
  Receive Date: 20131118
  Receipt Date: 20140110
  Transmission Date: 20141002
  Serious: Yes (Other)
  Sender: FDA-Public Use
  Company Number: US-GLAXOSMITHKLINE-A1049691A

PATIENT
  Age: 52 Year
  Sex: Male

DRUGS (10)
  1. FLOVENT [Suspect]
     Indication: ASTHMA
     Dosage: 2PUFF TWICE PER DAY
     Route: 055
  2. COMBIVENT [Concomitant]
  3. VITAMINS [Concomitant]
  4. ASPIRIN [Concomitant]
  5. PREVACID [Concomitant]
  6. FLUNISOLIDE NASAL SPRAY [Concomitant]
  7. ATENOLOL [Concomitant]
  8. CRESTOR [Concomitant]
  9. SUDAFED [Concomitant]
  10. ENALAPRIL [Concomitant]

REACTIONS (6)
  - Choking [Not Recovered/Not Resolved]
  - Wheezing [Not Recovered/Not Resolved]
  - Retching [Not Recovered/Not Resolved]
  - Oesophageal disorder [Not Recovered/Not Resolved]
  - Drug ineffective [Not Recovered/Not Resolved]
  - Dyspnoea [Not Recovered/Not Resolved]
